FAERS Safety Report 8842281 (Version 2)
Quarter: 2012Q4

REPORT INFORMATION
  Report Type: Report from Study
  Country: JP (occurrence: JP)
  Receive Date: 20121016
  Receipt Date: 20121227
  Transmission Date: 20130627
  Serious: Yes (Other)
  Sender: FDA-Public Use
  Company Number: JP-VERTEX PHARMACEUTICAL INC.-AE-2012-009747

PATIENT
  Age: 67 Year
  Sex: Female

DRUGS (17)
  1. VX-950 (TELAPREVIR) [Suspect]
     Indication: CHRONIC HEPATITIS C
     Dosage: 2250 mg, qd
     Route: 048
     Dates: start: 20120412, end: 20120416
  2. VX-950 (TELAPREVIR) [Suspect]
     Dosage: 1500 mg, qd
     Route: 048
     Dates: start: 20120420, end: 20120507
  3. VX-950 (TELAPREVIR) [Suspect]
     Dosage: 1500 mg, qd
     Route: 048
     Dates: start: 20120529, end: 20120724
  4. RIBAVIRIN [Suspect]
     Indication: CHRONIC HEPATITIS C
     Dosage: 400 mg, qd
     Route: 048
     Dates: start: 20120412, end: 20120501
  5. RIBAVIRIN [Suspect]
     Dosage: 200 mg, qd
     Route: 048
     Dates: start: 20120502, end: 20120507
  6. RIBAVIRIN [Suspect]
     Dosage: 200 mg, qd
     Route: 048
     Dates: start: 20120529, end: 20120807
  7. PEGINTERFERON ALFA-2B [Suspect]
     Indication: CHRONIC HEPATITIS C
     Dosage: 0.75 ?g/kg, qw
     Route: 058
     Dates: start: 20120412, end: 20120502
  8. PEGINTERFERON ALFA-2B [Suspect]
     Dosage: 0.75 ?g/kg, qw
     Route: 058
     Dates: start: 20120529, end: 20120731
  9. URSO                               /00465701/ [Concomitant]
     Dosage: 900 mg, qd
     Route: 048
  10. RENIVACE [Concomitant]
     Dosage: 10 mg, qd
     Route: 048
  11. NESINA [Concomitant]
     Dosage: 25 mg, qd
     Route: 048
  12. ITOROL [Concomitant]
     Dosage: 20 mg, qd
     Route: 048
  13. HERBESSER 90 [Concomitant]
     Dosage: 100 mg, qd
     Route: 048
  14. ADJUST-A [Concomitant]
     Dosage: 120 mg, qd
     Route: 048
  15. ALTAT [Concomitant]
     Dosage: 75 mg, qd
     Route: 048
  16. DETANTOL [Concomitant]
     Dosage: UNK, prn
     Route: 051
  17. NITRO PATCH [Concomitant]
     Dosage: UNK, prn
     Route: 051

REACTIONS (1)
  - Anaemia [Recovered/Resolved]
